FAERS Safety Report 5325992-8 (Version None)
Quarter: 2007Q2

REPORT INFORMATION
  Report Type: 
  Country: None (occurrence: None)
  Receive Date: 20070516
  Receipt Date: 20070504
  Transmission Date: 20071010
  Serious: Yes (Death)
  Sender: FDA-Public Use
  Company Number: BE-JNJFOC-20070501706

PATIENT
  Age: 33 Year
  Sex: Male

DRUGS (4)
  1. INFLIXIMAB [Suspect]
     Indication: CROHN'S DISEASE
     Route: 042
  2. AZA [Concomitant]
  3. MTX [Concomitant]
  4. TPN [Concomitant]

REACTIONS (1)
  - SUDDEN DEATH [None]
